FAERS Safety Report 4657667-2 (Version None)
Quarter: 2005Q2

REPORT INFORMATION
  Report Type: 
  Country: None (occurrence: None)
  Receive Date: 20050401
  Receipt Date: 20041202
  Transmission Date: 20051028
  Serious: Yes (Other)
  Sender: FDA-Public Use
  Company Number: 04-000890

PATIENT
  Age: 58 Year
  Sex: Female

DRUGS (7)
  1. ESTRACE [Suspect]
     Indication: HORMONE REPLACEMENT THERAPY
     Dosage: UNK, UNK, VAGINAL
     Route: 067
     Dates: start: 19991220, end: 20020505
  2. ESTRACE(ESTRADIOL, ESTRADIOL, ESTRADIOL) TABLET, 1MG [Suspect]
     Dosage: 1 MG, QD, ORAL
     Route: 048
     Dates: start: 19970913, end: 20020318
  3. PROVERA [Suspect]
     Indication: HORMONE REPLACEMENT THERAPY
     Dosage: 5MG DAY 1 TO 12, ORAL
     Route: 048
     Dates: start: 19951213, end: 20020608
  4. CYCRIN [Suspect]
     Indication: HORMONE REPLACEMENT THERAPY
     Dosage: UNK, UNK, ORAL
     Route: 048
     Dates: start: 19970813, end: 19981215
  5. LEVOTHYROXINE SODIUM [Concomitant]
  6. CETIRIZINE(CETIRIZINE) [Concomitant]
  7. CALCIUM GLUCONATE [Concomitant]

REACTIONS (1)
  - BREAST CANCER [None]
